FAERS Safety Report 9718974 (Version 1)
Quarter: 2013Q4

REPORT INFORMATION
  Report Type: Spontaneous
  Country: US (occurrence: US)
  Receive Date: 20131127
  Receipt Date: 20131127
  Transmission Date: 20140711
  Serious: Yes (Other)
  Sender: FDA-Public Use
  Company Number: US-PFIZER INC-2013338837

PATIENT
  Age: 49 Year
  Sex: Female
  Weight: 82.99 kg

DRUGS (4)
  1. ESTRING [Suspect]
     Indication: ATROPHIC VULVOVAGINITIS
     Dosage: 02 MG, UNK
     Route: 067
     Dates: start: 201303, end: 201306
  2. VIIBRYD [Concomitant]
     Indication: DEPRESSION
     Dosage: 40 MG, 1X/DAY
  3. METRONIDAZOLE [Concomitant]
     Indication: ROSACEA
     Dosage: UNK,2X/DAY
     Route: 061
  4. ASPIRIN [Concomitant]
     Indication: HYPERTENSION
     Dosage: 81 MG, 1X/DAY

REACTIONS (3)
  - Cerebrospinal fistula [Unknown]
  - Disease recurrence [Unknown]
  - Headache [Unknown]
